FAERS Safety Report 10056887 (Version 1)
Quarter: 2014Q2

REPORT INFORMATION
  Report Type: Spontaneous
  Country: IT (occurrence: IT)
  Receive Date: 20140403
  Receipt Date: 20140403
  Transmission Date: 20141212
  Serious: Yes (Other)
  Sender: FDA-Public Use
  Company Number: PHHY2014IT038943

PATIENT
  Age: 43 Year
  Sex: Male

DRUGS (1)
  1. TEGRETOL [Suspect]
     Indication: PARTIAL SEIZURES
     Dosage: 400 MG, DAILY
     Route: 048
     Dates: start: 20140310, end: 20140314

REACTIONS (2)
  - Leukopenia [Recovered/Resolved]
  - Vertigo [Recovered/Resolved]
